FAERS Safety Report 6610172-6 (Version None)
Quarter: 2010Q1

REPORT INFORMATION
  Report Type: 
  Country: None (occurrence: None)
  Receive Date: 20100219
  Receipt Date: 20100209
  Transmission Date: 20100710
  Serious: Yes (Hospitalization)
  Sender: FDA-Public Use
  Company Number: JP-2009-2191

PATIENT
  Age: 76 Year
  Sex: Male

DRUGS (4)
  1. NAVELBINE [Suspect]
     Indication: LUNG NEOPLASM MALIGNANT
     Dosage: 45 MG IV
     Route: 042
     Dates: start: 20070309
  2. PREDNISOLONE [Concomitant]
  3. ERYTHROMYCIN [Concomitant]
  4. MUCODYNE. MFR: NOT SPECIFIED [Concomitant]

REACTIONS (4)
  - BLOOD SODIUM DECREASED [None]
  - HAEMOGLOBIN DECREASED [None]
  - INTERSTITIAL LUNG DISEASE [None]
  - RESPIRATORY FAILURE [None]
